FAERS Safety Report 25140305 (Version 1)
Quarter: 2025Q1

REPORT INFORMATION
  Report Type: Spontaneous
  Country: GB (occurrence: GB)
  Receive Date: 20250331
  Receipt Date: 20250331
  Transmission Date: 20250409
  Serious: Yes (Other)
  Sender: ADVANZ PHARMA
  Company Number: GB-PHARMVIT-4556-3352-ER25-RN1378

PATIENT

DRUGS (1)
  1. PREDNISOLONE [Suspect]
     Active Substance: PREDNISOLONE

REACTIONS (3)
  - Drug interaction [Recovered/Resolved]
  - Immunosuppression [Recovered/Resolved]
  - Mycobacterium marinum infection [Recovered/Resolved]
